FAERS Safety Report 16457741 (Version 1)
Quarter: 2019Q2

REPORT INFORMATION
  Report Type: Spontaneous
  Country: IT (occurrence: IT)
  Receive Date: 20190620
  Receipt Date: 20190620
  Transmission Date: 20190711
  Serious: Yes (Life-Threatening)
  Sender: FDA-Public Use
  Company Number: IT-MYLANLABS-2019M1056754

PATIENT
  Age: 57 Year
  Sex: Male

DRUGS (3)
  1. CEFAZOLIN [Suspect]
     Active Substance: CEFAZOLIN
     Indication: ANTIBIOTIC PROPHYLAXIS
     Dosage: 2.2 GRAM, TOTAL
     Route: 042
     Dates: start: 20181122, end: 20181122
  2. ROCURONIUM [Suspect]
     Active Substance: ROCURONIUM BROMIDE
     Indication: ANAESTHESIA
     Dosage: 90 MILLIGRAM, TOTAL
     Route: 042
     Dates: start: 20181122, end: 20181122
  3. FENTANYL CITRATE. [Suspect]
     Active Substance: FENTANYL CITRATE
     Indication: ANAESTHESIA
     Dosage: 0.3 MILLIGRAM, TOTAL
     Route: 042
     Dates: start: 20181122, end: 20181122

REACTIONS (2)
  - Procedural hypotension [Recovered/Resolved]
  - Urticaria [Recovered/Resolved]

NARRATIVE: CASE EVENT DATE: 20181122
